FAERS Safety Report 9053416 (Version 2)
Quarter: 2014Q1

REPORT INFORMATION
  Report Type: Report from Study
  Country: IN (occurrence: IN)
  Receive Date: 20130208
  Receipt Date: 20140127
  Transmission Date: 20141002
  Serious: Yes (Death, Hospitalization)
  Sender: FDA-Public Use
  Company Number: PHHY2013IN011637

PATIENT
  Age: 92 Year
  Sex: Male

DRUGS (1)
  1. ACLASTA [Suspect]
     Indication: OSTEOPOROSIS
     Dosage: 5 MG (5MG/100ML), YEARLY
     Route: 042
     Dates: start: 20130116

REACTIONS (5)
  - Death [Fatal]
  - Dyspnoea [Unknown]
  - Cough [Unknown]
  - Nasopharyngitis [Unknown]
  - Pyrexia [Unknown]
